FAERS Safety Report 10184096 (Version 1)
Quarter: 2014Q2

REPORT INFORMATION
  Report Type: Spontaneous
  Country: US (occurrence: US)
  Receive Date: 20140520
  Receipt Date: 20140520
  Transmission Date: 20141212
  Serious: No
  Sender: FDA-Public Use
  Company Number: US-ASTRAZENECA-2014SE15382

PATIENT
  Age: 24 Year
  Sex: Male
  Weight: 90.7 kg

DRUGS (6)
  1. BUDESONIDE [Suspect]
     Indication: CROHN^S DISEASE
     Route: 048
     Dates: start: 201402
  2. PENTAZA [Concomitant]
     Indication: CROHN^S DISEASE
     Route: 048
     Dates: start: 201402
  3. FISH OIL [Concomitant]
     Dosage: DAILY
     Route: 048
     Dates: start: 201311
  4. VITAMIN D [Concomitant]
     Indication: VITAMIN D DEFICIENCY
     Dosage: UNKNOWN DAILY
     Route: 048
     Dates: start: 201311
  5. B12 [Concomitant]
     Indication: SUPPLEMENTATION THERAPY
     Dosage: DAILY
     Route: 048
     Dates: start: 201311
  6. IRON [Concomitant]
     Indication: SUPPLEMENTATION THERAPY
     Dosage: DAILY
     Route: 048
     Dates: start: 201311

REACTIONS (3)
  - Abdominal pain [Recovered/Resolved]
  - Diarrhoea [Recovered/Resolved]
  - Proctalgia [Recovered/Resolved]
